FAERS Safety Report 17360669 (Version 1)
Quarter: 2020Q1

REPORT INFORMATION
  Report Type: Spontaneous
  Country: AU (occurrence: AU)
  Receive Date: 20200203
  Receipt Date: 20200203
  Transmission Date: 20200409
  Serious: Yes (Other)
  Sender: FDA-Public Use
  Company Number: AU-GLAXOSMITHKLINE-AU2020GSK017795

PATIENT
  Age: 25 Year
  Sex: Male

DRUGS (1)
  1. TAFENOQUINE [Suspect]
     Active Substance: TAFENOQUINE
     Indication: PRODUCT USED FOR UNKNOWN INDICATION
     Dosage: UNK

REACTIONS (6)
  - Loss of consciousness [Unknown]
  - Headache [Unknown]
  - Insomnia [Unknown]
  - Cheyne-Stokes respiration [Unknown]
  - Nervous system disorder [Unknown]
  - Nightmare [Unknown]
